FAERS Safety Report 6278122-2 (Version None)
Quarter: 2009Q3

REPORT INFORMATION
  Report Type: 
  Country: None (occurrence: None)
  Receive Date: 20090722
  Receipt Date: 20090719
  Transmission Date: 20100115
  Serious: Yes (Other)
  Sender: FDA-Public Use
  Company Number: US-PFIZER INC-2009205815

PATIENT
  Sex: Female

DRUGS (1)
  1. DIFLUCAN [Suspect]
     Indication: ONYCHOMYCOSIS
     Dosage: FREQUENCY: 3X/WK,
     Dates: start: 20090301, end: 20090422

REACTIONS (1)
  - PLATELET COUNT INCREASED [None]
